FAERS Safety Report 12646397 (Version 2)
Quarter: 2016Q3

REPORT INFORMATION
  Report Type: Spontaneous
  Country: US (occurrence: US)
  Receive Date: 20160812
  Receipt Date: 20160915
  Transmission Date: 20161109
  Serious: Yes (Other)
  Sender: FDA-Public Use
  Company Number: US-009507513-1608USA001848

PATIENT
  Age: 67 Year
  Sex: Male

DRUGS (1)
  1. ZONTIVITY [Suspect]
     Active Substance: VORAPAXAR SULFATE
     Route: 048

REACTIONS (1)
  - Angina pectoris [Recovered/Resolved]
